FAERS Safety Report 17143133 (Version 4)
Quarter: 2020Q1

REPORT INFORMATION
  Report Type: Spontaneous
  Country: US (occurrence: US)
  Receive Date: 20191212
  Receipt Date: 20200130
  Transmission Date: 20200409
  Serious: Yes (Other)
  Sender: FDA-Public Use
  Company Number: US-JNJFOC-20191214821

PATIENT
  Age: 55 Year
  Sex: Male
  Weight: 90.8 kg

DRUGS (2)
  1. SIMPONI [Suspect]
     Active Substance: GOLIMUMAB
     Indication: ANKYLOSING SPONDYLITIS
     Dosage: EVERY 28 TO 30 DAYS
     Route: 058
     Dates: start: 2011
  2. ASPIRIN                            /00002701/ [Concomitant]
     Active Substance: ASPIRIN
     Dosage: AS NEEDED
     Route: 048

REACTIONS (6)
  - Ankylosing spondylitis [Not Recovered/Not Resolved]
  - Accidental exposure to product [Unknown]
  - Product dose omission [Unknown]
  - Device malfunction [Unknown]
  - Therapeutic response decreased [Unknown]
  - Product label issue [Unknown]

NARRATIVE: CASE EVENT DATE: 20191130
